FAERS Safety Report 8523406-8 (Version None)
Quarter: 2012Q3

REPORT INFORMATION
  Report Type: 
  Country: None (occurrence: None)
  Receive Date: 20120720
  Receipt Date: 20101014
  Transmission Date: 20120928
  Serious: Yes (Hospitalization, Other)
  Sender: FDA-Public Use
  Company Number: US-BAYER-201016006NA

PATIENT
  Age: 24 Year
  Sex: Female
  Weight: 92.971 kg

DRUGS (5)
  1. YASMIN [Suspect]
     Dosage: UNK
     Dates: start: 20020101, end: 20090101
  2. MOTRIN [Concomitant]
  3. YAZ [Suspect]
     Dosage: UNK
     Dates: start: 20020101, end: 20090101
  4. ACETAMINOPHEN [Concomitant]
  5. IBUPROFEN (ADVIL) [Concomitant]

REACTIONS (2)
  - CHOLELITHIASIS [None]
  - CHOLECYSTITIS CHRONIC [None]
